FAERS Safety Report 21368662 (Version 1)
Quarter: 2022Q3

REPORT INFORMATION
  Report Type: Spontaneous
  Country: DE (occurrence: DE)
  Receive Date: 20220923
  Receipt Date: 20220923
  Transmission Date: 20221027
  Serious: Yes (Hospitalization)
  Sender: FDA-Public Use
  Company Number: None

PATIENT
  Age: 63 Year
  Sex: Female
  Weight: 70 kg

DRUGS (7)
  1. SUMATRIPTAN [Suspect]
     Active Substance: SUMATRIPTAN
     Indication: Product used for unknown indication
     Dosage: UNK
     Route: 048
  2. NEBIVOLOL [Concomitant]
     Active Substance: NEBIVOLOL
     Indication: Product used for unknown indication
     Dosage: 5 MG, BID (0.5-0-0.5-0)
     Route: 048
  3. ATORVASTATIN CALCIUM [Concomitant]
     Active Substance: ATORVASTATIN CALCIUM
     Indication: Product used for unknown indication
     Dosage: 40 MG, QD (0-1-0-0)
     Route: 048
  4. MELPERONE [Concomitant]
     Active Substance: MELPERONE
     Indication: Product used for unknown indication
     Dosage: 50 MG, QD (0-0-0-1)
     Route: 048
  5. AMITRIPTYLINE [Concomitant]
     Active Substance: AMITRIPTYLINE
     Indication: Product used for unknown indication
     Dosage: 50 MG, QD (0-0-0-1)
     Route: 048
  6. PANTOPRAZOLE [Concomitant]
     Active Substance: PANTOPRAZOLE
     Indication: Product used for unknown indication
     Dosage: 40 MG, QD (0-1-0-0)
     Route: 048
  7. ASPIRIN [Concomitant]
     Active Substance: ASPIRIN
     Indication: Product used for unknown indication
     Dosage: 100 MG, QD (0-1-0-0)
     Route: 048

REACTIONS (5)
  - Headache [Unknown]
  - Headache [Unknown]
  - Dizziness [Unknown]
  - Product prescribing error [Unknown]
  - Product prescribing error [Unknown]
